FAERS Safety Report 16374894 (Version 2)
Quarter: 2019Q2

REPORT INFORMATION
  Report Type: Report from Study
  Country: DE (occurrence: DE)
  Receive Date: 20190531
  Receipt Date: 20190615
  Transmission Date: 20190711
  Serious: Yes (Hospitalization)
  Sender: FDA-Public Use
  Company Number: DE-BRISTOL-MYERS SQUIBB COMPANY-BMS-2019-013522

PATIENT
  Age: 77 Year
  Sex: Female
  Weight: 86 kg

DRUGS (24)
  1. CLOPIDOGREL BISULFATE. [Suspect]
     Active Substance: CLOPIDOGREL BISULFATE
     Indication: PRODUCT USED FOR UNKNOWN INDICATION
     Dosage: 75 MG, DAILY
     Route: 048
     Dates: start: 20180201, end: 20180830
  2. RAMIPRIL. [Concomitant]
     Active Substance: RAMIPRIL
     Indication: HYPERTENSION
     Dosage: 5 MG, DAILY
     Route: 048
     Dates: end: 2018
  3. NAPROXEN. [Concomitant]
     Active Substance: NAPROXEN
     Indication: BONE PAIN
     Dosage: 250 MG, DAILY
     Route: 048
  4. METOPROLOL. [Concomitant]
     Active Substance: METOPROLOL
     Indication: PRODUCT USED FOR UNKNOWN INDICATION
     Dosage: 142.5 MILLIGRAM, DAILY
     Route: 048
     Dates: start: 201804
  5. PANTOPRAZOLE [Concomitant]
     Active Substance: PANTOPRAZOLE
     Indication: PROPHYLAXIS AGAINST GASTROINTESTINAL ULCER
     Dosage: 40 MG, DAILY
     Route: 048
     Dates: end: 201804
  6. PREGABALIN. [Concomitant]
     Active Substance: PREGABALIN
     Indication: PARAESTHESIA
     Dosage: 25 MG, DAILY
     Route: 048
     Dates: end: 2018
  7. ALENDRONIC ACID [Concomitant]
     Active Substance: ALENDRONIC ACID
     Indication: OSTEOPOROSIS
     Dosage: 10 MILLIGRAM, DAILY
     Route: 048
  8. COLECALCIFEROL [Concomitant]
     Active Substance: CHOLECALCIFEROL
     Indication: OSTEOPOROSIS
     Dosage: 400 INTERNATIONAL UNIT
     Route: 048
  9. POTASSIUM CHLORIDE. [Concomitant]
     Active Substance: POTASSIUM CHLORIDE
     Indication: PRODUCT USED FOR UNKNOWN INDICATION
     Dosage: 600 MG, DAILY
     Route: 048
     Dates: end: 201804
  10. ALLOPURINOL. [Concomitant]
     Active Substance: ALLOPURINOL
     Indication: HYPERURICAEMIA
     Dosage: 100 MG, DAILY
     Route: 048
     Dates: end: 201804
  11. OXAZEPAM. [Concomitant]
     Active Substance: OXAZEPAM
     Indication: SLEEP DISORDER
     Dosage: 10 MG, UNK
     Route: 048
     Dates: start: 2018
  12. APIXABAN [Suspect]
     Active Substance: APIXABAN
     Indication: PRODUCT USED FOR UNKNOWN INDICATION
     Route: 048
  13. TORASEMID [Concomitant]
     Active Substance: TORSEMIDE
     Indication: DIURETIC THERAPY
     Dosage: 20 MG, DAILY
     Route: 048
     Dates: end: 201804
  14. PANTOPRAZOLE [Concomitant]
     Active Substance: PANTOPRAZOLE
     Indication: PRODUCT USED FOR UNKNOWN INDICATION
     Dosage: 10 MILLIGRAM,DAILY
     Route: 048
     Dates: start: 201804
  15. L-THYROXIN                         /00068001/ [Concomitant]
     Active Substance: LEVOTHYROXINE
     Indication: HYPOTHYROIDISM
     Dosage: 50 MICROGRAM,DAILY
     Route: 048
     Dates: end: 201804
  16. METFORMIN HYDROCHLORIDE. [Suspect]
     Active Substance: METFORMIN HYDROCHLORIDE
     Indication: TYPE 2 DIABETES MELLITUS
     Dosage: 1000 MILLIGRAM,DAILY
     Route: 048
     Dates: end: 2018
  17. METOPROLOL. [Concomitant]
     Active Substance: METOPROLOL
     Indication: PRODUCT USED FOR UNKNOWN INDICATION
     Dosage: 95 MILLIGRAM, DAILY
     Route: 048
     Dates: start: 2018
  18. SIMVASTATIN. [Concomitant]
     Active Substance: SIMVASTATIN
     Indication: HYPERLIPIDAEMIA
     Dosage: 20 MILLIGRAM, DAILY
     Route: 048
     Dates: end: 2018
  19. PREGABALIN. [Concomitant]
     Active Substance: PREGABALIN
     Indication: PRODUCT USED FOR UNKNOWN INDICATION
     Dosage: 150 MILLIGRAM, DAILY
     Route: 048
     Dates: start: 2018
  20. VITAMIN D1 [Concomitant]
     Indication: PRODUCT USED FOR UNKNOWN INDICATION
     Dosage: 200 MILLIGRAM, DAILY
     Route: 048
     Dates: start: 2018
  21. ASA [Suspect]
     Active Substance: ASPIRIN
     Indication: PRODUCT USED FOR UNKNOWN INDICATION
     Dosage: 100 MG, DAILY
     Route: 048
     Dates: start: 201304
  22. TORASEMID [Concomitant]
     Active Substance: TORSEMIDE
     Indication: PRODUCT USED FOR UNKNOWN INDICATION
     Dosage: 10 MILLIGRAM, DAILY
     Route: 048
     Dates: start: 201804
  23. METOPROLOL. [Concomitant]
     Active Substance: METOPROLOL
     Indication: HYPERTENSION
     Dosage: 95 MG, DAILY
     Route: 048
     Dates: end: 201804
  24. AMLODIPIN                          /00972401/ [Concomitant]
     Active Substance: AMLODIPINE BESYLATE
     Indication: HYPERTENSION
     Dosage: 5 MG, DAILY
     Route: 048
     Dates: start: 201804

REACTIONS (1)
  - Gastrooesophageal reflux disease [Recovered/Resolved]

NARRATIVE: CASE EVENT DATE: 20180928
